FAERS Safety Report 7329063-0 (Version None)
Quarter: 2011Q1

REPORT INFORMATION
  Report Type: 
  Country: None (occurrence: None)
  Receive Date: 20110303
  Receipt Date: 20110224
  Transmission Date: 20110831
  Serious: Yes (Death)
  Sender: FDA-Public Use
  Company Number: DK-SANOFI-AVENTIS-2011SA006544

PATIENT
  Age: 67 Year
  Sex: Female
  Weight: 80 kg

DRUGS (11)
  1. SENDOXAN [Concomitant]
     Route: 042
     Dates: start: 20110119, end: 20110119
  2. PRAVASTATIN [Concomitant]
     Route: 048
  3. DOCETAXEL [Suspect]
     Indication: BREAST CANCER
     Route: 041
     Dates: start: 20101208, end: 20101208
  4. DOCETAXEL [Suspect]
     Route: 041
     Dates: start: 20101229, end: 20101229
  5. DOCETAXEL [Suspect]
     Route: 041
     Dates: start: 20110119, end: 20110119
  6. SENDOXAN [Concomitant]
     Route: 042
     Dates: start: 20101229, end: 20101229
  7. EZETROL [Concomitant]
     Route: 048
  8. RAMIPRIL [Concomitant]
     Route: 048
  9. SENDOXAN [Concomitant]
     Indication: BREAST CANCER
     Route: 042
     Dates: start: 20101208, end: 20101208
  10. LANSOPRAZOLE [Concomitant]
     Route: 048
  11. ACETYLSALICYLIC ACID [Concomitant]
     Route: 048

REACTIONS (1)
  - CARDIAC ARREST [None]
